FAERS Safety Report 19459435 (Version 1)
Quarter: 2021Q2

REPORT INFORMATION
  Report Type: Spontaneous
  Country: US (occurrence: US)
  Receive Date: 20210625
  Receipt Date: 20210625
  Transmission Date: 20210717
  Serious: No
  Sender: FDA-Public Use
  Company Number: None

PATIENT
  Age: 62 Year
  Sex: Female
  Weight: 90 kg

DRUGS (1)
  1. ALENDRONATE 70MG [Suspect]
     Active Substance: ALENDRONATE SODIUM
     Indication: OSTEOPOROSIS

REACTIONS (7)
  - Back pain [None]
  - Impaired driving ability [None]
  - Pain in extremity [None]
  - Pain [None]
  - Foot fracture [None]
  - Insomnia [None]
  - Stress fracture [None]

NARRATIVE: CASE EVENT DATE: 20210504
